FAERS Safety Report 15853482 (Version 1)
Quarter: 2018Q4

REPORT INFORMATION
  Report Type: Spontaneous
  Country: US (occurrence: US)
  Receive Date: 20181228
  Receipt Date: 20181228
  Transmission Date: 20190205
  Serious: Yes (Hospitalization)
  Sender: FDA-Public Use
  Company Number: None

PATIENT
  Age: 41 Year
  Sex: Female
  Weight: 117.6 kg

DRUGS (11)
  1. TYLENOL [Suspect]
     Active Substance: ACETAMINOPHEN
  2. FLUTICASONE (FLONASE) [Concomitant]
  3. ISAVUCONAZONIUM SULFATE (CRESEMBA) [Concomitant]
  4. AMICAR [Concomitant]
     Active Substance: AMINOCAPROIC ACID
  5. DIPHENHYDRAMINE/LIDOCAINE/ANTACID (MAGIC MOUTHWASH) [Concomitant]
  6. INSULIN ASPART (NOVOLOG FLEXPEN) [Concomitant]
  7. DAUNORUBICIN 6.75MG/M2/DAY [Suspect]
     Active Substance: DAUNORUBICIN
     Indication: AMYOTROPHIC LATERAL SCLEROSIS
     Route: 042
     Dates: start: 20181221, end: 20181224
  8. CELEXA [Concomitant]
     Active Substance: CITALOPRAM HYDROBROMIDE
  9. ACYCLOVIR (ZOVIRAX) [Concomitant]
  10. DEXTRAN 70/HYPROMELLOSE (NATURAL BALANCE TEARS) [Concomitant]
  11. INSULIN GLARGINE [Suspect]
     Active Substance: INSULIN GLARGINE

REACTIONS (1)
  - Thrombocytopenia [None]

NARRATIVE: CASE EVENT DATE: 20181226
